FAERS Safety Report 23838151 (Version 2)
Quarter: 2024Q3

REPORT INFORMATION
  Report Type: Spontaneous
  Country: BR (occurrence: BR)
  Receive Date: 20240509
  Receipt Date: 20240731
  Transmission Date: 20241016
  Serious: Yes (Hospitalization)
  Sender: AMERICAN REGENT
  Company Number: BR-AMERICAN REGENT INC-2024001714

PATIENT
  Sex: Female
  Weight: 56 kg

DRUGS (4)
  1. VENOFER [Suspect]
     Active Substance: IRON SUCROSE
     Indication: Iron deficiency
     Dosage: FOR 2 WEEK (1 DOSAGE FORMS, 2 IN 1 WK), ONE DOSAGE FORM (UNIT) TWICE A WEEK
     Dates: start: 202403, end: 202404
  2. VENOFER [Suspect]
     Active Substance: IRON SUCROSE
     Dosage: FOR 3 WEEK (2 DOSAGE FORMS,1 IN 1 WK)  2 UNITS, ONCE A WEEK
     Dates: start: 20240418, end: 20240418
  3. FLUTICASONE FUROATE\VILANTEROL TRIFENATATE [Concomitant]
     Active Substance: FLUTICASONE FUROATE\VILANTEROL TRIFENATATE
     Indication: Asthma
     Dosage: UNK, STARTED 6 YEARS AGO (1 IN 1 D), QD
     Route: 065
     Dates: start: 2018
  4. HYDROCHLOROTHIAZIDE\VALSARTAN [Concomitant]
     Active Substance: HYDROCHLOROTHIAZIDE\VALSARTAN
     Indication: Hypertension
     Dosage: UNK, STARTED 1 YEAR AGO (160 MG VALSARTAN + 12.5 MG HYDROCHLOROTHIAZIDE) (1 IN 1 D), QD
     Route: 065
     Dates: start: 2023

REACTIONS (8)
  - Urticaria [Recovered/Resolved]
  - Malaise [Recovered/Resolved]
  - Product use complaint [Unknown]
  - Oedema peripheral [Recovered/Resolved]
  - Abdominal discomfort [Recovered/Resolved]
  - Arthralgia [Recovered/Resolved]
  - Nausea [Recovered/Resolved]
  - Abdominal pain [Recovered/Resolved]

NARRATIVE: CASE EVENT DATE: 20240101
